FAERS Safety Report 26096969 (Version 1)
Quarter: 2025Q4

REPORT INFORMATION
  Report Type: Spontaneous
  Country: US (occurrence: US)
  Receive Date: 20251127
  Receipt Date: 20251127
  Transmission Date: 20260118
  Serious: Yes (Hospitalization)
  Sender: Phathom Pharmaceuticals
  Company Number: US-PHATHOM PHARMACEUTICALS INC.-2025PHT03460

PATIENT
  Age: 78 Year
  Sex: Female
  Weight: 61.2 kg

DRUGS (14)
  1. VOQUEZNA [Suspect]
     Active Substance: VONOPRAZAN FUMARATE
     Indication: Gastrooesophageal reflux disease
     Dosage: 20 MG, 1X/DAY
     Route: 048
     Dates: start: 20250920
  2. AMLODIPINE [Concomitant]
     Active Substance: AMLODIPINE BESYLATE
  3. GABAPENTIN [Concomitant]
     Active Substance: GABAPENTIN
  4. TOPAMAX [Concomitant]
     Active Substance: TOPIRAMATE
  5. CLINDAMYCIN [Concomitant]
     Active Substance: CLINDAMYCIN
  6. FAMOTIDINE [Concomitant]
     Active Substance: FAMOTIDINE
  7. COENZYME Q10 [Concomitant]
     Active Substance: DIETARY SUPPLEMENT\UBIDECARENONE
  8. MAGNESIUM [Concomitant]
     Active Substance: MAGNESIUM
  9. PRAVASTATIN [Concomitant]
     Active Substance: PRAVASTATIN
  10. DULOXETINE [Concomitant]
     Active Substance: DULOXETINE
  11. ASPIRIN [Concomitant]
     Active Substance: ASPIRIN
  12. ZETIA [Concomitant]
     Active Substance: EZETIMIBE
  13. VITAMIN D3 [Concomitant]
     Active Substance: CHOLECALCIFEROL
  14. CALCIUM [Concomitant]
     Active Substance: CALCIUM

REACTIONS (1)
  - Upper limb fracture [Unknown]

NARRATIVE: CASE EVENT DATE: 20250101
